FAERS Safety Report 8846554 (Version 1)
Quarter: 2012Q4

REPORT INFORMATION
  Report Type: 
  Country: GB (occurrence: GB)
  Receive Date: 20121017
  Receipt Date: 20121017
  Transmission Date: 20130627
  Serious: Yes (Hospitalization, Disabling)
  Sender: FDA-Public Use
  Company Number: GB-GLAXOSMITHKLINE-B0837246A

PATIENT
  Age: 24 Year
  Sex: Female
  Weight: 57.15 kg

DRUGS (3)
  1. DUAC [Suspect]
     Indication: ACNE
     Dosage: 1IUAX Per day
     Route: 061
     Dates: start: 20120921, end: 20120930
  2. SALBUTAMOL [Concomitant]
  3. SERETIDE [Concomitant]

REACTIONS (2)
  - Abdominal pain [Recovered/Resolved]
  - Malaise [Recovered/Resolved]
